FAERS Safety Report 25842815 (Version 1)
Quarter: 2025Q3

REPORT INFORMATION
  Report Type: Report from Study
  Country: US (occurrence: US)
  Receive Date: 20250924
  Receipt Date: 20250924
  Transmission Date: 20251020
  Serious: Yes (Other)
  Sender: BAUSCH AND LOMB
  Company Number: US-BAUSCH-BH-2025-017713

PATIENT
  Age: 39 Year
  Sex: Female
  Weight: 68.2 kg

DRUGS (18)
  1. XIFAXAN [Suspect]
     Active Substance: RIFAXIMIN
     Indication: Hepatic encephalopathy
     Dosage: ONE TABLET BY MOUTH TWICE DAILY
     Route: 048
     Dates: start: 20241230
  2. VITAMIN A [Concomitant]
     Active Substance: VITAMIN A
     Indication: Product used for unknown indication
     Dosage: 3000 MCG 10,000 UNIT, TAKE ONE CAPSULE BY MOUTH TWICE DAILY
     Route: 048
     Dates: start: 20250414, end: 20250707
  3. RETIN-A [Concomitant]
     Active Substance: TRETINOIN
     Indication: Product used for unknown indication
     Route: 061
     Dates: start: 20230913
  4. MIRENA [Concomitant]
     Active Substance: LEVONORGESTREL
     Indication: Product used for unknown indication
     Dosage: 20MCG/24 HOURS (7 YRS) 52 MG INTRAUTERINE DEVICE?ONE INTRA UTERINE DEVICE BY INTRAUTERINE ROUTE ONCE
     Route: 015
  5. FERROUS SULFATE [Concomitant]
     Active Substance: FERROUS SULFATE
     Indication: Product used for unknown indication
     Dosage: (65 MG IRON), TAKE ONE TABLET BY MOUTH DAILY WITH BREAKFAST
     Route: 048
     Dates: start: 20250407
  6. KLONOPIN [Concomitant]
     Active Substance: CLONAZEPAM
     Indication: Anxiety
     Dosage: TAKE ONE-HALF TABLET BY MOUTH AT BEDTIME AS NEEDED (ANXIETY LEADING TO INSOMNIA)
     Route: 048
     Dates: start: 20250617, end: 20250722
  7. KLONOPIN [Concomitant]
     Active Substance: CLONAZEPAM
     Indication: Insomnia
  8. CLEOCIN T [Concomitant]
     Active Substance: CLINDAMYCIN PHOSPHATE
     Indication: Product used for unknown indication
     Dosage: APPLY SMALL AMOUNT TO FACE 2 TIMES A DAY
     Route: 061
     Dates: start: 20230913
  9. PROAIR HFA [Concomitant]
     Active Substance: ALBUTEROL SULFATE
     Indication: Product used for unknown indication
     Dosage: 90 MCG/ACTUATION, INHALE TWO PUFFS BY MOUTH INTO THE LUNGS EVERY 6 HOURS AS NEEDED
     Dates: start: 20250102
  10. NEURONTIN [Concomitant]
     Active Substance: GABAPENTIN
     Indication: Product used for unknown indication
     Dosage: TAKE THREE CAPSULES BY MOUTH AT BEDTIME DAILY
     Route: 048
     Dates: end: 20250722
  11. ATARAX [Concomitant]
     Active Substance: HYDROXYZINE HYDROCHLORIDE
     Indication: Anxiety
     Dosage: TAKE 1 TABLET BY MOUTH THREE TIMES A DAY AS NEEDED FOR ANXIETY
     Route: 048
     Dates: start: 20250528, end: 20250722
  12. LACTULOSE [Concomitant]
     Active Substance: LACTULOSE
     Indication: Product used for unknown indication
     Route: 048
  13. ZOFRAN [Concomitant]
     Active Substance: ONDANSETRON HYDROCHLORIDE
     Indication: Nausea
     Dosage: TAKE ONE TABLET BY MOUTH THREE TIMES DAILY AS NEEDED FOR NAUSEA
     Route: 048
     Dates: start: 20230310
  14. PROTONIX [Concomitant]
     Active Substance: PANTOPRAZOLE SODIUM
     Indication: Product used for unknown indication
     Dosage: TAKE ONE TABLET BY MOUTH DAILY
     Route: 048
     Dates: start: 20250131
  15. INDERAL [Concomitant]
     Active Substance: PROPRANOLOL HYDROCHLORIDE
     Indication: Product used for unknown indication
     Dosage: TAKE ONE TABLET BY MOUTH THREE TIMES DAILY
     Route: 048
     Dates: start: 20240614, end: 20250728
  16. ZANAFLEX [Concomitant]
     Active Substance: TIZANIDINE HYDROCHLORIDE
     Indication: Product used for unknown indication
     Dosage: TAKE ONE-HALF TABLET BY MOUTH EVERY 6 HOURS AS NEEDED. CUT IT IN HALF.
     Route: 048
  17. KENALOG [Concomitant]
     Active Substance: TRIAMCINOLONE ACETONIDE
     Indication: Product used for unknown indication
     Route: 061
     Dates: start: 20230913
  18. VIIBRYD [Concomitant]
     Active Substance: VILAZODONE HYDROCHLORIDE
     Indication: Major depression
     Dosage: TAKE ONE TABLET BY MOUTH DAILY WITH BREAKFAST
     Route: 048
     Dates: start: 20250409

REACTIONS (23)
  - Haematochezia [Unknown]
  - Weight increased [Unknown]
  - Confusional state [Recovered/Resolved]
  - Personality change [Recovered/Resolved]
  - Abnormal behaviour [Recovered/Resolved]
  - Musculoskeletal stiffness [Unknown]
  - Appetite disorder [Unknown]
  - Temperature intolerance [Unknown]
  - Peripheral swelling [Unknown]
  - Epistaxis [Unknown]
  - Photophobia [Unknown]
  - Night sweats [Unknown]
  - Arthralgia [Unknown]
  - Diarrhoea [Unknown]
  - Haematuria [Unknown]
  - Dizziness [Unknown]
  - Muscle spasms [Unknown]
  - Fatigue [Unknown]
  - Pruritus [Unknown]
  - Insomnia [Unknown]
  - Pollakiuria [Unknown]
  - Nausea [Unknown]
  - Back pain [Unknown]

NARRATIVE: CASE EVENT DATE: 20250101
